FAERS Safety Report 23924784 (Version 1)
Quarter: 2024Q2

REPORT INFORMATION
  Report Type: Spontaneous
  Country: US (occurrence: US)
  Receive Date: 20240531
  Receipt Date: 20240531
  Transmission Date: 20240716
  Serious: Yes (Other)
  Sender: FDA-Public Use
  Company Number: US-MYLANLABS-2024M1049074

PATIENT
  Age: 48 Year
  Sex: Male
  Weight: 68.95 kg

DRUGS (2)
  1. CELEBREX [Suspect]
     Active Substance: CELECOXIB
     Indication: Back pain
     Dosage: 200 MILLIGRAM, BID
     Route: 048
  2. PANTOPRAZOLE [Suspect]
     Active Substance: PANTOPRAZOLE
     Indication: Abdominal discomfort
     Dosage: 400 MILLIGRAM, QD
     Route: 065

REACTIONS (3)
  - Hallucination [Unknown]
  - Pain in jaw [Unknown]
  - Inappropriate schedule of product administration [Unknown]

NARRATIVE: CASE EVENT DATE: 20240525
